FAERS Safety Report 12959884 (Version 1)
Quarter: 2016Q4

REPORT INFORMATION
  Report Type: Spontaneous
  Country: US (occurrence: US)
  Receive Date: 20161121
  Receipt Date: 20161121
  Transmission Date: 20170207
  Serious: No
  Sender: FDA-Public Use
  Company Number: US-GLAXOSMITHKLINE-US2016167020

PATIENT
  Age: 45 Year
  Sex: Male

DRUGS (1)
  1. FLONASE [Suspect]
     Active Substance: FLUTICASONE PROPIONATE
     Indication: HYPERSENSITIVITY
     Dosage: 2 DF, BID,  TWICE IN EACH NOSTRIL TWICE DAILY FOR ONE WEEK
     Dates: start: 20161103, end: 20161110

REACTIONS (3)
  - Overdose [Unknown]
  - Cough [Unknown]
  - Drug ineffective [Unknown]
